FAERS Safety Report 8392596-2 (Version None)
Quarter: 2012Q2

REPORT INFORMATION
  Report Type: 
  Country: None (occurrence: None)
  Receive Date: 20120529
  Receipt Date: 20120524
  Transmission Date: 20120825
  Serious: Yes (Death)
  Sender: FDA-Public Use
  Company Number: GB-CELGENEUS-167-FK228-12052148

PATIENT
  Sex: Female
  Weight: 80 kg

DRUGS (1)
  1. ROMIDEPSIN [Suspect]
     Indication: PERIPHERAL T-CELL LYMPHOMA UNSPECIFIED
     Dosage: 28 MILLIGRAM
     Route: 065
     Dates: end: 20120428

REACTIONS (1)
  - ADULT T-CELL LYMPHOMA/LEUKAEMIA REFRACTORY [None]
